FAERS Safety Report 7078554-9 (Version None)
Quarter: 2010Q4

REPORT INFORMATION
  Report Type: 
  Country: None (occurrence: None)
  Receive Date: 20101102
  Receipt Date: 20101025
  Transmission Date: 20110411
  Serious: Yes (Hospitalization)
  Sender: FDA-Public Use
  Company Number: JP-SANOFI-AVENTIS-2010SA037602

PATIENT
  Age: 49 Year
  Sex: Female
  Weight: 58 kg

DRUGS (13)
  1. ARAVA [Suspect]
     Indication: RHEUMATOID ARTHRITIS
     Route: 048
     Dates: start: 20060211, end: 20060214
  2. ARAVA [Suspect]
     Route: 048
     Dates: start: 20060323, end: 20060413
  3. ARAVA [Suspect]
     Route: 048
     Dates: start: 20060417
  4. OSTELUC [Suspect]
     Indication: RHEUMATOID ARTHRITIS
     Dosage: DIVIDED DOSE FREQUENCY UNKNOWN
     Route: 048
  5. PREDNISOLONE [Suspect]
     Indication: RHEUMATOID ARTHRITIS
     Dosage: DIVIDED DOSE FREQUENCY UNKNOWN
     Route: 048
  6. CYANOCOBALAMIN [Concomitant]
     Indication: NEUROPATHY PERIPHERAL
     Dosage: DIVIDED DOSE FREQUENCY UNKNOWN
     Route: 048
  7. TAKEPRON [Concomitant]
     Indication: GASTRITIS
     Dosage: DIVIDED DOSE FREQUENCY UNKNOWN
     Route: 048
     Dates: start: 20051212
  8. ETANERCEPT [Concomitant]
     Indication: RHEUMATOID ARTHRITIS
     Dosage: TWICE A WEEK
     Route: 058
     Dates: start: 20051130, end: 20060118
  9. DEPAS [Concomitant]
     Indication: ANXIETY
     Dosage: DIVIDED DOSE FREQUENCY UNKNOWN
     Route: 048
     Dates: start: 20060224, end: 20060405
  10. DEPAS [Concomitant]
     Dosage: DIVIDED DOSE FREQUENCY UNKNOWN
     Route: 048
     Dates: start: 20060406
  11. PREDNISOLONE [Concomitant]
     Indication: RHEUMATOID ARTHRITIS
     Dosage: DIVIDED DOSE FREQUENCY UNKNOWN
     Route: 048
     Dates: start: 20060714
  12. PREDNISOLONE [Concomitant]
     Route: 048
     Dates: end: 20060713
  13. PREDNISOLONE [Concomitant]
     Route: 048
     Dates: start: 20060714

REACTIONS (6)
  - ABDOMINAL PAIN UPPER [None]
  - BACK PAIN [None]
  - BLOOD ALBUMIN DECREASED [None]
  - BLOOD ALKALINE PHOSPHATASE INCREASED [None]
  - BURSITIS [None]
  - COUGH [None]
